FAERS Safety Report 6550242-4 (Version None)
Quarter: 2010Q1

REPORT INFORMATION
  Report Type: 
  Country: None (occurrence: None)
  Receive Date: 20100125
  Receipt Date: 20100114
  Transmission Date: 20100710
  Serious: Yes (Hospitalization)
  Sender: FDA-Public Use
  Company Number: JP-JNJFOC-20091101226

PATIENT
  Sex: Male
  Weight: 74 kg

DRUGS (6)
  1. REMICADE [Suspect]
     Indication: CROHN'S DISEASE
     Dosage: 2ND INFUSION
     Route: 042
     Dates: end: 20071031
  2. REMICADE [Suspect]
     Dosage: 1ST INFUSION
     Route: 042
     Dates: end: 20071031
  3. REMICADE [Suspect]
     Dosage: 4TH INFUSION
     Route: 042
     Dates: end: 20071031
  4. REMICADE [Suspect]
     Dosage: 3RD INFUSION
     Route: 042
     Dates: end: 20071031
  5. PENTASA [Concomitant]
     Indication: CROHN'S DISEASE
  6. LAC B [Concomitant]
     Indication: CROHN'S DISEASE

REACTIONS (1)
  - HERPES ZOSTER [None]
